FAERS Safety Report 10367823 (Version 1)
Quarter: 2014Q3

REPORT INFORMATION
  Report Type: Spontaneous
  Country: US (occurrence: None)
  Receive Date: 20140806
  Receipt Date: 20140806
  Transmission Date: 20150326
  Serious: No
  Sender: FDA-Public Use
  Company Number: None

PATIENT
  Sex: Female

DRUGS (2)
  1. AMLODIPINE BESYLATE. [Concomitant]
     Active Substance: AMLODIPINE BESYLATE
  2. BUSPIRONE [Suspect]
     Active Substance: BUSPIRONE HYDROCHLORIDE
     Indication: ANXIETY
     Dosage: 5 MILLIGRAM, 1 PILL (ONE), ONCE IN THE MORN. + ONCE IN THE EVENING BY MOUTH
     Route: 048
     Dates: start: 20140519, end: 20140628

REACTIONS (4)
  - Pain in extremity [None]
  - Headache [None]
  - Abdominal pain upper [None]
  - Pain [None]
